FAERS Safety Report 16127887 (Version 1)
Quarter: 2019Q1

REPORT INFORMATION
  Report Type: Spontaneous
  Country: US (occurrence: US)
  Receive Date: 20190225
  Receipt Date: 20190225
  Transmission Date: 20190418
  Serious: Yes (Hospitalization)
  Sender: FDA-Public Use
  Company Number: None

PATIENT
  Age: 49 Year
  Sex: Male

DRUGS (1)
  1. AFINITOR [Suspect]
     Active Substance: EVEROLIMUS
     Indication: RENAL CANCER
     Dosage: 25FEB2019 - 12-FEB-2019
     Route: 048
     Dates: end: 20190212

REACTIONS (3)
  - Feeding disorder [None]
  - Nausea [None]
  - Fluid intake reduced [None]

NARRATIVE: CASE EVENT DATE: 20190210
